FAERS Safety Report 9839003 (Version 1)
Quarter: 2013Q4

REPORT INFORMATION
  Report Type: Spontaneous
  Country: US (occurrence: None)
  Receive Date: 20131211
  Receipt Date: 20131211
  Transmission Date: 20140711
  Serious: Yes (Other)
  Sender: FDA-Public Use
  Company Number: 003-104

PATIENT
  Age: 40 Year
  Sex: Male

DRUGS (3)
  1. CROFAB [Suspect]
     Indication: BITE
     Dosage: 4 VIALS
     Dates: start: 20130411, end: 20130411
  2. ATIVAN [Suspect]
     Dosage: ONCE
     Dates: start: 20130411, end: 20130411
  3. DILAUDID [Suspect]
     Indication: PAIN
     Dosage: ONCE
     Dates: start: 20130411, end: 20130411

REACTIONS (2)
  - Hypotension [None]
  - Urticaria [None]
